FAERS Safety Report 17657430 (Version 1)
Quarter: 2020Q2

REPORT INFORMATION
  Report Type: Report from Study
  Country: US (occurrence: US)
  Receive Date: 20200410
  Receipt Date: 20200410
  Transmission Date: 20200713
  Serious: Yes (Hospitalization)
  Sender: FDA-Public Use
  Company Number: US-ACTELION-A-NJ2019-193133

PATIENT
  Age: 45 Year
  Sex: Female

DRUGS (9)
  1. LASIX [Concomitant]
     Active Substance: FUROSEMIDE
     Dosage: 40 MG, QD
     Dates: start: 201906
  2. OPSUMIT [Suspect]
     Active Substance: MACITENTAN
     Indication: PULMONARY ARTERIAL HYPERTENSION
     Dosage: 10 MG, QD
     Route: 048
     Dates: start: 201906
  3. TOPAMAX [Concomitant]
     Active Substance: TOPIRAMATE
     Dosage: 50MG 2X DAILY
     Dates: start: 2018, end: 201905
  4. SPIRONOLACTONE. [Concomitant]
     Active Substance: SPIRONOLACTONE
     Dosage: 25 MG, QD
     Dates: start: 2018
  5. IRON [Concomitant]
     Active Substance: IRON
     Dosage: 375 MG, QD
     Dates: start: 201906
  6. TOPAMAX [Concomitant]
     Active Substance: TOPIRAMATE
     Dosage: 75MG 2X DAILY
     Dates: start: 201905
  7. ADEMPAS [Concomitant]
     Active Substance: RIOCIGUAT
     Dosage: 2.5 MG 3X DAILY
     Dates: start: 201902
  8. COUMADIN [Concomitant]
     Active Substance: WARFARIN SODIUM
     Dosage: 4MG M,W,SUN, 6MG T,TH,SAT
     Dates: start: 201902
  9. ATORVASTATIN [Concomitant]
     Active Substance: ATORVASTATIN
     Dosage: 25 MG, QD
     Dates: start: 2018

REACTIONS (9)
  - Migraine [Recovering/Resolving]
  - Impatience [Unknown]
  - Hospitalisation [Recovered/Resolved]
  - Laziness [Not Recovered/Not Resolved]
  - Memory impairment [Unknown]
  - Headache [Recovering/Resolving]
  - Fatigue [Unknown]
  - Cough [Recovered/Resolved]
  - Urinary tract infection [Unknown]

NARRATIVE: CASE EVENT DATE: 201906
